FAERS Safety Report 9109581 (Version 3)
Quarter: 2013Q2

REPORT INFORMATION
  Report Type: Spontaneous
  Country: US (occurrence: US)
  Receive Date: 20130222
  Receipt Date: 20130418
  Transmission Date: 20140414
  Serious: Yes (Death)
  Sender: FDA-Public Use
  Company Number: US-PFIZER INC-2012291428

PATIENT
  Age: 77 Year
  Sex: Female

DRUGS (2)
  1. INLYTA [Suspect]
     Indication: RENAL CELL CARCINOMA
     Dosage: 1 MG, 2X/DAY (ABOUT 120 DAYS)
     Route: 048
     Dates: start: 20120618, end: 20121002
  2. INLYTA [Suspect]
     Dosage: 6 MG, 2X/DAY
     Route: 048
     Dates: start: 20120618, end: 20121002

REACTIONS (2)
  - Disease progression [Fatal]
  - Metastatic renal cell carcinoma [Fatal]
